FAERS Safety Report 11489282 (Version 5)
Quarter: 2015Q4

REPORT INFORMATION
  Report Type: Report from Study
  Country: US (occurrence: US)
  Receive Date: 20150910
  Receipt Date: 20151104
  Transmission Date: 20160304
  Serious: Yes (Hospitalization)
  Sender: FDA-Public Use
  Company Number: US-BIOGENIDEC-2015BI120699

PATIENT
  Age: 33 Year
  Sex: Female

DRUGS (1)
  1. TYSABRI [Suspect]
     Active Substance: NATALIZUMAB
     Indication: MULTIPLE SCLEROSIS
     Route: 042
     Dates: start: 20130625

REACTIONS (7)
  - Asthenia [Not Recovered/Not Resolved]
  - Postoperative abscess [Recovered/Resolved]
  - Feeding disorder [Not Recovered/Not Resolved]
  - Gastrectomy [Recovered/Resolved]
  - Fluid intake reduced [Not Recovered/Not Resolved]
  - Stress [Not Recovered/Not Resolved]
  - Muscle spasms [Not Recovered/Not Resolved]

NARRATIVE: CASE EVENT DATE: 20150728
